FAERS Safety Report 5676327-2 (Version None)
Quarter: 2008Q1

REPORT INFORMATION
  Report Type: 
  Country: None (occurrence: None)
  Receive Date: 20080321
  Receipt Date: 20080313
  Transmission Date: 20080703
  Serious: Yes (Other)
  Sender: FDA-Public Use
  Company Number: GB-PFIZER INC-2008016919

PATIENT
  Sex: Male
  Weight: 94 kg

DRUGS (3)
  1. LIPITOR [Suspect]
     Indication: BLOOD CHOLESTEROL INCREASED
     Route: 048
     Dates: start: 20010101, end: 20080227
  2. ATENOLOL [Concomitant]
     Dosage: DAILY DOSE:12.5MG-FREQ:DAILY
     Route: 048
  3. MICROPIRIN [Concomitant]
     Dosage: DAILY DOSE:75MG-FREQ:DAILY
     Route: 048

REACTIONS (3)
  - BALANCE DISORDER [None]
  - OEDEMA PERIPHERAL [None]
  - POLYURIA [None]
